FAERS Safety Report 18436069 (Version 3)
Quarter: 2021Q1

REPORT INFORMATION
  Report Type: Spontaneous
  Country: US (occurrence: US)
  Receive Date: 20201028
  Receipt Date: 20210121
  Transmission Date: 20210419
  Serious: Yes (Other)
  Sender: FDA-Public Use
  Company Number: US-GILEAD-2020-0501579

PATIENT
  Age: 61 Year
  Sex: Female

DRUGS (1)
  1. TRUVADA [Suspect]
     Active Substance: EMTRICITABINE\TENOFOVIR DISOPROXIL FUMARATE
     Indication: HIV INFECTION
     Dosage: UNK
     Route: 048
     Dates: start: 20060703, end: 2018

REACTIONS (8)
  - Anhedonia [Unknown]
  - Chronic kidney disease [Not Recovered/Not Resolved]
  - Anxiety [Unknown]
  - Tooth fracture [Unknown]
  - Emotional distress [Unknown]
  - Tooth loss [Not Recovered/Not Resolved]
  - Renal failure [Not Recovered/Not Resolved]
  - Pain [Unknown]

NARRATIVE: CASE EVENT DATE: 201106
